FAERS Safety Report 17497165 (Version 1)
Quarter: 2020Q1

REPORT INFORMATION
  Report Type: Spontaneous
  Country: SK (occurrence: CZ)
  Receive Date: 20200304
  Receipt Date: 20200304
  Transmission Date: 20200409
  Serious: Yes (Other)
  Sender: FDA-Public Use
  Company Number: SK-MYLANLABS-2020M1022410

PATIENT
  Age: 50 Year
  Sex: Male

DRUGS (6)
  1. OXALIPLATIN. [Suspect]
     Active Substance: OXALIPLATIN
     Dosage: UNK
     Dates: start: 2018, end: 2018
  2. FOLINIC ACID [Suspect]
     Active Substance: LEUCOVORIN
     Indication: COLON CANCER
     Dosage: UNK
     Dates: start: 201805, end: 201805
  3. FOLINIC ACID [Suspect]
     Active Substance: LEUCOVORIN
     Dosage: UNK
     Dates: start: 2018, end: 2018
  4. FLUOROURACIL. [Suspect]
     Active Substance: FLUOROURACIL
     Indication: COLON CANCER
     Dosage: UNK
     Route: 065
  5. CETUXIMAB. [Suspect]
     Active Substance: CETUXIMAB
     Indication: COLON CANCER
     Dosage: UNK
     Route: 065
  6. OXALIPLATIN. [Suspect]
     Active Substance: OXALIPLATIN
     Indication: COLON CANCER
     Dosage: UNK
     Dates: start: 201805, end: 201805

REACTIONS (3)
  - Haematotoxicity [Unknown]
  - Thrombocytopenia [Unknown]
  - Hypersensitivity [Unknown]

NARRATIVE: CASE EVENT DATE: 2018
